FAERS Safety Report 7812953-X (Version None)
Quarter: 2011Q4

REPORT INFORMATION
  Report Type: 
  Country: None (occurrence: None)
  Receive Date: 20111011
  Receipt Date: 20110923
  Transmission Date: 20120403
  Serious: Yes (Hospitalization)
  Sender: FDA-Public Use
  Company Number: DSA_47710_2011

PATIENT
  Sex: Male

DRUGS (5)
  1. BUPROPION HCL [Suspect]
     Indication: DEPRESSION
     Dosage: DF
  2. AMLODIPINE [Concomitant]
  3. VENLAFAXINE HCL [Suspect]
     Indication: DEPRESSION
     Dosage: 75 MG PILLS X20;1500 MG DAILY DOSE) (150 MG FREQUENCY UNSPECIFIED), (300 MG FREQUENCY NOT SPECIFIED)
     Dates: end: 20050101
  4. PAROXETINE HCL [Suspect]
     Indication: DEPRESSION
     Dosage: DF
  5. UNSPECIFIED SLEEPING PILLS [Concomitant]

REACTIONS (25)
  - DEPRESSION [None]
  - FEAR [None]
  - TREMOR [None]
  - ASTHENIA [None]
  - OVERDOSE [None]
  - IMPULSIVE BEHAVIOUR [None]
  - GASTROINTESTINAL DISORDER [None]
  - TINNITUS [None]
  - NAUSEA [None]
  - DYSPNOEA [None]
  - HYPERHIDROSIS [None]
  - DECREASED APPETITE [None]
  - SUICIDE ATTEMPT [None]
  - ABDOMINAL PAIN UPPER [None]
  - ANXIETY [None]
  - WITHDRAWAL SYNDROME [None]
  - PARAESTHESIA [None]
  - CHEST DISCOMFORT [None]
  - INSOMNIA [None]
  - SELF-MEDICATION [None]
  - DRUG DEPENDENCE [None]
  - AGITATION [None]
  - HYPERTENSION [None]
  - VERTIGO [None]
  - TACHYCARDIA [None]
